FAERS Safety Report 5811770-X (Version None)
Quarter: 2008Q3

REPORT INFORMATION
  Report Type: 
  Country: None (occurrence: None)
  Receive Date: 20080711
  Receipt Date: 20080627
  Transmission Date: 20090109
  Serious: Yes (Other)
  Sender: FDA-Public Use
  Company Number: S08-FRA-02317-01

PATIENT
  Age: 80 Year
  Sex: Male

DRUGS (3)
  1. SEROPLEX (ESCITALOPRAM) [Suspect]
     Indication: DEPRESSION
     Dosage: 10 MG QD PO
     Route: 048
  2. LEVOFLOXACIN [Suspect]
  3. ANTIPSYCHOTICS (NOS) [Concomitant]

REACTIONS (2)
  - CONFUSIONAL STATE [None]
  - ENURESIS [None]
